FAERS Safety Report 7798582-5 (Version None)
Quarter: 2011Q4

REPORT INFORMATION
  Report Type: 
  Country: None (occurrence: None)
  Receive Date: 20111005
  Receipt Date: 20110926
  Transmission Date: 20120403
  Serious: Yes (Other)
  Sender: FDA-Public Use
  Company Number: US-ASTRAZENECA-2011SE57581

PATIENT
  Age: 58 Year
  Sex: Female
  Weight: 51.2 kg

DRUGS (3)
  1. ALLERGY INJECTION [Concomitant]
  2. PROCARDIA [Suspect]
     Indication: HYPERTENSION
     Route: 065
  3. ZESTRIL [Suspect]
     Indication: HYPERTENSION
     Route: 048

REACTIONS (8)
  - HEADACHE [None]
  - CARDIAC DISORDER [None]
  - HYPERSOMNIA [None]
  - PAIN IN EXTREMITY [None]
  - MALAISE [None]
  - FEELING ABNORMAL [None]
  - MEMORY IMPAIRMENT [None]
  - GAIT DISTURBANCE [None]
